FAERS Safety Report 23917645 (Version 4)
Quarter: 2024Q2

REPORT INFORMATION
  Report Type: Spontaneous
  Country: LB (occurrence: LB)
  Receive Date: 20240530
  Receipt Date: 20240619
  Transmission Date: 20240716
  Serious: Yes (Death, Hospitalization)
  Sender: FDA-Public Use
  Company Number: LB-NOVOPROD-1225612

PATIENT
  Age: 82 Year
  Sex: Male

DRUGS (1)
  1. NOVOSEVEN [Suspect]
     Active Substance: COAGULATION FACTOR VIIA RECOMBINANT HUMAN
     Indication: Pulmonary alveolar haemorrhage
     Dosage: 3 MG

REACTIONS (2)
  - Pulmonary alveolar haemorrhage [Fatal]
  - Off label use [Unknown]
